FAERS Safety Report 6410443-2 (Version None)
Quarter: 2009Q4

REPORT INFORMATION
  Report Type: 
  Country: None (occurrence: None)
  Receive Date: 20091022
  Receipt Date: 20091012
  Transmission Date: 20100525
  Serious: Yes (Hospitalization)
  Sender: FDA-Public Use
  Company Number: FR-WATSON-2009-08553

PATIENT
  Age: 67 Year
  Sex: Female

DRUGS (1)
  1. PREDNISONE (WATSON LABORATORIES) [Suspect]
     Indication: CONNECTIVE TISSUE DISORDER
     Dosage: 5 MG, DAILY
     Route: 048

REACTIONS (2)
  - MYOCARDIAL INFARCTION [None]
  - PAPILLARY MUSCLE RUPTURE [None]
